FAERS Safety Report 5210260-5 (Version None)
Quarter: 2007Q1

REPORT INFORMATION
  Report Type: 
  Country: None (occurrence: None)
  Receive Date: 20070112
  Receipt Date: 20070112
  Transmission Date: 20070707
  Serious: Yes (Other)
  Sender: FDA-Public Use
  Company Number: None

PATIENT
  Age: 57 Year
  Sex: Female
  Weight: 66.6788 kg

DRUGS (4)
  1. OMNICEF [Suspect]
     Indication: SINUSITIS
     Dosage: 300 MG, 2 X DAY X 1 THEN DAILY ORAL
     Route: 048
  2. AZITHROMYCIN [Suspect]
     Indication: SINUSITIS
     Dosage: 250 MG, 2 TABS X1 THEN 1 TAB DAILY ORAL
     Route: 048
  3. LUNESTA [Concomitant]
  4. AMITRIPTYLINE HCL [Concomitant]

REACTIONS (1)
  - DIARRHOEA [None]
